FAERS Safety Report 21680801 (Version 3)
Quarter: 2023Q2

REPORT INFORMATION
  Report Type: Report from Study
  Country: US (occurrence: US)
  Receive Date: 20221205
  Receipt Date: 20230427
  Transmission Date: 20230722
  Serious: Yes (Other)
  Sender: FDA-Public Use
  Company Number: US-ABBVIE-4201156

PATIENT
  Age: 67 Year
  Sex: Female
  Weight: 80.739 kg

DRUGS (2)
  1. HUMIRA [Suspect]
     Active Substance: ADALIMUMAB
     Indication: Rheumatoid arthritis
     Route: 058
     Dates: start: 20220705, end: 20230314
  2. HUMIRA [Suspect]
     Active Substance: ADALIMUMAB
     Dosage: CITRATE FREE
     Route: 058

REACTIONS (8)
  - Cataract [Unknown]
  - Muscle spasms [Not Recovered/Not Resolved]
  - Device breakage [Recovered/Resolved]
  - Injection site bruising [Recovered/Resolved]
  - Weight decreased [Not Recovered/Not Resolved]
  - Wrist fracture [Unknown]
  - Injury [Unknown]
  - Spinal support [Recovered/Resolved]

NARRATIVE: CASE EVENT DATE: 20220801
